FAERS Safety Report 23022194 (Version 4)
Quarter: 2023Q4

REPORT INFORMATION
  Report Type: Report from Study
  Country: NL (occurrence: NL)
  Receive Date: 20231003
  Receipt Date: 20231221
  Transmission Date: 20240110
  Serious: Yes (Hospitalization, Other)
  Sender: FDA-Public Use
  Company Number: NL-ABBVIE-5422655

PATIENT
  Age: 68 Year
  Sex: Male

DRUGS (11)
  1. CARBIDOPA\LEVODOPA [Suspect]
     Active Substance: CARBIDOPA\LEVODOPA
     Indication: Parkinson^s disease
     Dosage: MD: 9.5ML; CD: 2.2 ML/H; ED: 2.0ML, LAST ADMIN DATE 2023
     Route: 050
     Dates: start: 202309
  2. CARBIDOPA\LEVODOPA [Suspect]
     Active Substance: CARBIDOPA\LEVODOPA
     Dosage: MD: 9.5ML; CD: 2.2 ML/H; ED: 2.0ML
     Route: 050
     Dates: start: 20230922, end: 20231107
  3. CARBIDOPA\LEVODOPA [Suspect]
     Active Substance: CARBIDOPA\LEVODOPA
     Dosage: MD: 12.5ML; CD: 2.2 ML/H; ED: 2.0ML?DURATION TEXT: REMAINS AT 16 HOURS
     Route: 050
     Dates: start: 20231120, end: 20231213
  4. CARBIDOPA\LEVODOPA [Suspect]
     Active Substance: CARBIDOPA\LEVODOPA
     Dosage: MD: 12.0ML, CD: 2.2ML/H, ED: 2.0ML?DURATION TEXT: REMAINS AT 16 HOURS
     Route: 050
     Dates: start: 20231213
  5. CARBIDOPA\LEVODOPA [Suspect]
     Active Substance: CARBIDOPA\LEVODOPA
     Dosage: MD: 9.0ML; CD: 1.5ML/H; ED: 2.0ML, REMAINS AT 16 HOURS
     Route: 050
     Dates: start: 20230920, end: 20230922
  6. CARBIDOPA\LEVODOPA [Suspect]
     Active Substance: CARBIDOPA\LEVODOPA
     Dosage: MD: 8.0ML; CD: 0.9ML/H; ED: 1.0ML?REMAINS AT 16 HOURS
     Route: 050
     Dates: start: 20230919, end: 20230920
  7. CARBIDOPA\LEVODOPA [Suspect]
     Active Substance: CARBIDOPA\LEVODOPA
     Dosage: MD: 12.5ML; CD: 2.2 ML/H; ED: 2.0ML?DURATION TEXT: REMAINS AT 16 HOURS
     Route: 050
     Dates: start: 20231107, end: 20231120
  8. BUPROPION [Concomitant]
     Active Substance: BUPROPION
     Indication: Antidepressant therapy
     Route: 048
  9. SINEMET [Concomitant]
     Active Substance: CARBIDOPA\LEVODOPA
     Indication: Parkinson^s disease
     Dosage: FORM STRENGTH: 125 MG
     Route: 048
     Dates: end: 20230919
  10. STALEVO [Concomitant]
     Active Substance: CARBIDOPA\ENTACAPONE\LEVODOPA
     Indication: Parkinson^s disease
     Dosage: 11/25/220
     Route: 048
     Dates: end: 20230919
  11. Colex [Concomitant]
     Indication: Product used for unknown indication
     Dosage: FREQUENCY TEXT: ON SET DAYS
     Route: 065

REACTIONS (27)
  - Pneumoperitoneum [Not Recovered/Not Resolved]
  - Muscle spasms [Not Recovered/Not Resolved]
  - On and off phenomenon [Not Recovered/Not Resolved]
  - Memory impairment [Not Recovered/Not Resolved]
  - Therapeutic product effect incomplete [Not Recovered/Not Resolved]
  - Syncope [Not Recovered/Not Resolved]
  - Depressed level of consciousness [Recovering/Resolving]
  - Orthostatic hypotension [Not Recovered/Not Resolved]
  - Musculoskeletal disorder [Not Recovered/Not Resolved]
  - Hypophagia [Not Recovered/Not Resolved]
  - Abdominal pain [Recovered/Resolved]
  - Hyperhidrosis [Not Recovered/Not Resolved]
  - Fluid intake reduced [Not Recovered/Not Resolved]
  - Muscle rigidity [Not Recovered/Not Resolved]
  - Enteral nutrition [Recovered/Resolved]
  - Speech disorder [Not Recovered/Not Resolved]
  - Fatigue [Not Recovered/Not Resolved]
  - Weight decreased [Not Recovered/Not Resolved]
  - Dystonia [Not Recovered/Not Resolved]
  - Dysphagia [Not Recovered/Not Resolved]
  - Supplementation therapy [Not Recovered/Not Resolved]
  - Dyschezia [Not Recovered/Not Resolved]
  - Mobility decreased [Not Recovered/Not Resolved]
  - Decreased appetite [Not Recovered/Not Resolved]
  - Diarrhoea [Not Recovered/Not Resolved]
  - Stoma site discharge [Not Recovered/Not Resolved]
  - Feeding disorder [Not Recovered/Not Resolved]

NARRATIVE: CASE EVENT DATE: 20230101
